FAERS Safety Report 6261516-9 (Version None)
Quarter: 2009Q3

REPORT INFORMATION
  Report Type: 
  Country: None (occurrence: None)
  Receive Date: 20090702
  Receipt Date: 20090416
  Transmission Date: 20100115
  Serious: No
  Sender: FDA-Public Use
  Company Number: 1000005805

PATIENT
  Age: 78 Year
  Sex: Female

DRUGS (10)
  1. BYSTOLIC [Suspect]
     Indication: HYPERTENSION
     Dosage: 5 MG (5 MG, 1 IN 1 D),ORAL
     Route: 048
     Dates: start: 20090404, end: 20090409
  2. ASPIRIN [Concomitant]
  3. SIMVASTATIN [Concomitant]
  4. FELODIPINE [Concomitant]
  5. LISINOPRIL [Concomitant]
  6. LORAZEPAM [Concomitant]
  7. ACTONEL [Concomitant]
  8. MIRALAX [Concomitant]
  9. CITRUCEL [Concomitant]
  10. PROTONIX [Concomitant]

REACTIONS (2)
  - DISCOMFORT [None]
  - THROAT TIGHTNESS [None]
